FAERS Safety Report 14182370 (Version 4)
Quarter: 2018Q2

REPORT INFORMATION
  Report Type: Report from Study
  Country: None (occurrence: US)
  Receive Date: 20171113
  Receipt Date: 20180605
  Transmission Date: 20180711
  Serious: Yes (Hospitalization, Other)
  Sender: FDA-Public Use
  Company Number: US-ABBVIE-17K-163-2138423-00

PATIENT
  Age: 59 Year
  Sex: Male

DRUGS (4)
  1. HUMIRA [Suspect]
     Active Substance: ADALIMUMAB
     Indication: PSORIASIS
     Route: 058
     Dates: start: 2016, end: 20171009
  2. TAMULOSIN [Concomitant]
     Active Substance: TAMSULOSIN
     Indication: DYSURIA
  3. CITALOPRAM [Concomitant]
     Active Substance: CITALOPRAM HYDROBROMIDE
     Indication: ANXIETY
  4. ATENOLOL. [Concomitant]
     Active Substance: ATENOLOL
     Indication: HYPERTENSION

REACTIONS (10)
  - Limb injury [Recovering/Resolving]
  - Therapeutic response shortened [Unknown]
  - Post procedural complication [Unknown]
  - Psoriasis [Unknown]
  - Allergy to metals [Unknown]
  - Urticaria [Recovered/Resolved]
  - Acne [Unknown]
  - Dry skin [Unknown]
  - Procedural pain [Recovering/Resolving]
  - Urticaria [Recovered/Resolved]

NARRATIVE: CASE EVENT DATE: 2017
